FAERS Safety Report 6501705-9 (Version None)
Quarter: 2009Q4

REPORT INFORMATION
  Report Type: 
  Country: None (occurrence: None)
  Receive Date: 20091216
  Receipt Date: 20090903
  Transmission Date: 20100525
  Serious: No
  Sender: FDA-Public Use
  Company Number: US-AMGEN-KDL359784

PATIENT
  Sex: Female

DRUGS (11)
  1. ARANESP [Suspect]
     Indication: MYELODYSPLASTIC SYNDROME
     Dates: start: 20050601
  2. MONOPRIL [Concomitant]
  3. CALCIUM [Concomitant]
  4. TOPROL-XL [Concomitant]
  5. LASIX [Concomitant]
  6. ATROVENT [Concomitant]
  7. NITROGLYCERIN [Concomitant]
  8. MORPHINE [Concomitant]
  9. TRAMADOL HCL [Concomitant]
  10. FERROUS SULFATE TAB [Concomitant]
  11. FLOVENT [Concomitant]

REACTIONS (3)
  - BLOOD PRESSURE DECREASED [None]
  - HAEMOGLOBIN DECREASED [None]
  - PLATELET COUNT INCREASED [None]
